FAERS Safety Report 23106921 (Version 1)
Quarter: 2023Q4

REPORT INFORMATION
  Report Type: Spontaneous
  Country: US (occurrence: US)
  Receive Date: 20231026
  Receipt Date: 20231026
  Transmission Date: 20240110
  Serious: Yes (Other)
  Sender: FDA-Public Use
  Company Number: US-Merck Healthcare KGaA-2023482900

PATIENT
  Age: 48 Year
  Sex: Male

DRUGS (1)
  1. SEROSTIM [Suspect]
     Active Substance: SOMATROPIN
     Indication: Cachexia
     Dates: start: 202102

REACTIONS (2)
  - Dehydration [Unknown]
  - Seizure [Unknown]

NARRATIVE: CASE EVENT DATE: 20231018
